FAERS Safety Report 10925573 (Version 1)
Quarter: 2015Q1

REPORT INFORMATION
  Report Type: Spontaneous
  Country: US (occurrence: US)
  Receive Date: 20150318
  Receipt Date: 20150318
  Transmission Date: 20150721
  Serious: No
  Sender: FDA-Public Use
  Company Number: US-TEVA-547788USA

PATIENT
  Age: 26 Year
  Sex: Female

DRUGS (3)
  1. CLARAVIS [Suspect]
     Active Substance: ISOTRETINOIN
     Indication: ACNE
     Route: 048
  2. BOTOX COSMETIC [Suspect]
     Active Substance: ONABOTULINUMTOXINA
     Dosage: 1 UNIT TO FRONTALIS; 3 UNITS TO FLABELLA
     Route: 030
     Dates: start: 20141008
  3. BOTOX COSMETIC [Suspect]
     Active Substance: ONABOTULINUMTOXINA
     Indication: SKIN WRINKLING
     Dosage: 5 UNITS TO EACH SIDE OF EYE; 4 UNITS TO FRONTALIS
     Route: 030
     Dates: start: 20140910

REACTIONS (4)
  - Vision blurred [Recovering/Resolving]
  - Diplopia [Recovered/Resolved]
  - Dry eye [Recovered/Resolved]
  - Vitreous floaters [Unknown]

NARRATIVE: CASE EVENT DATE: 201411
